FAERS Safety Report 9859224 (Version 1)
Quarter: 2014Q1

REPORT INFORMATION
  Report Type: Spontaneous
  Country: US (occurrence: None)
  Receive Date: 20140122
  Receipt Date: 20140122
  Transmission Date: 20141002
  Serious: Yes (Other)
  Sender: FDA-Public Use
  Company Number: BTG00101

PATIENT
  Age: 72 Year
  Sex: Female

DRUGS (2)
  1. DIGIFAB [Suspect]
     Indication: TOXICITY TO VARIOUS AGENTS
     Dosage: 8 VIALS, SINGLE
     Dates: start: 20140103
  2. DIGOXIN [Suspect]
     Indication: PRODUCT USED FOR UNKNOWN INDICATION
     Dosage: ^FOR LAST 8/7^

REACTIONS (6)
  - Toxicity to various agents [None]
  - Hyperkalaemia [None]
  - Mental status changes [None]
  - Visual impairment [None]
  - Bradycardia [None]
  - Drug ineffective [None]
